FAERS Safety Report 4301506-6 (Version None)
Quarter: 2004Q1

REPORT INFORMATION
  Report Type: 
  Country: None (occurrence: None)
  Receive Date: 20040219
  Receipt Date: 20040205
  Transmission Date: 20041129
  Serious: Yes (Hospitalization)
  Sender: FDA-Public Use
  Company Number: S04-USA-00578-01

PATIENT
  Age: 36 Year
  Sex: Female

DRUGS (7)
  1. LEXAPRO [Suspect]
     Indication: DEPRESSION
     Dosage: 10 MG QD PO
     Route: 048
     Dates: start: 20031018
  2. LEXAPRO [Suspect]
     Indication: DEPRESSION
     Dosage: 20 MG QD PO
     Route: 048
  3. CLOZAPINE [Suspect]
     Indication: SCHIZOAFFECTIVE DISORDER
     Dosage: 625 MG QD
     Dates: start: 20031018, end: 20031201
  4. HALDOL [Suspect]
     Indication: AGITATION
     Dosage: 2 MG Q4HR
     Dates: start: 20030610, end: 20031201
  5. PREVACID [Concomitant]
  6. FERROUS SULFATE TAB [Concomitant]
  7. SURFAX (DOCUSATE CALCIUM) [Concomitant]

REACTIONS (2)
  - DRUG INTERACTION [None]
  - HEPATITIS [None]
